FAERS Safety Report 5916567-8 (Version None)
Quarter: 2008Q4

REPORT INFORMATION
  Report Type: 
  Country: None (occurrence: None)
  Receive Date: 20081013
  Receipt Date: 20081008
  Transmission Date: 20090506
  Serious: Yes (Other)
  Sender: FDA-Public Use
  Company Number: JP-BRISTOL-MYERS SQUIBB COMPANY-14364822

PATIENT
  Age: 23 Year
  Sex: Female
  Weight: 34 kg

DRUGS (1)
  1. FUNGIZONE [Suspect]
     Indication: BRONCHOPULMONARY ASPERGILLOSIS
     Route: 041

REACTIONS (1)
  - ELECTROCARDIOGRAM QT PROLONGED [None]
